FAERS Safety Report 4485666-2 (Version None)
Quarter: 2004Q4

REPORT INFORMATION
  Report Type: 
  Country: None (occurrence: None)
  Receive Date: 20041026
  Receipt Date: 20041021
  Transmission Date: 20050328
  Serious: Yes (Life-Threatening, Hospitalization)
  Sender: FDA-Public Use
  Company Number: US-MERCK-0410USA03295

PATIENT
  Age: 71 Year
  Sex: Male

DRUGS (2)
  1. VIOXX [Suspect]
     Indication: NECK PAIN
     Route: 048
     Dates: start: 20031001, end: 20041001
  2. VIOXX [Suspect]
     Indication: ARTHRALGIA
     Route: 048
     Dates: start: 20031001, end: 20041001

REACTIONS (2)
  - MYOCARDIAL INFARCTION [None]
  - VEIN DISORDER [None]
